FAERS Safety Report 25523241 (Version 1)
Quarter: 2025Q3

REPORT INFORMATION
  Report Type: Spontaneous
  Country: GB (occurrence: GB)
  Receive Date: 20250707
  Receipt Date: 20250707
  Transmission Date: 20251020
  Serious: Yes (Hospitalization)
  Sender: Unknown Manufacturer
  Company Number: GB-RHYTHM PHARMACEUTICALS, INC.-2025RHM000263

PATIENT

DRUGS (3)
  1. IMCIVREE [Suspect]
     Active Substance: SETMELANOTIDE
     Indication: Product use in unapproved indication
     Dosage: 1 MILLIGRAM, QD
     Route: 058
     Dates: start: 20250423
  2. IMCIVREE [Suspect]
     Active Substance: SETMELANOTIDE
     Dosage: 2 MILLIGRAM, QD
     Route: 058
  3. IMCIVREE [Suspect]
     Active Substance: SETMELANOTIDE
     Dosage: 3 MILLIGRAM, QD
     Route: 058

REACTIONS (11)
  - Blood test [Not Recovered/Not Resolved]
  - Adverse drug reaction [Unknown]
  - Decreased appetite [Unknown]
  - Crying [Unknown]
  - Aphonia [Unknown]
  - Product use in unapproved indication [Recovered/Resolved]
  - Somnolence [Unknown]
  - Headache [Unknown]
  - Skin discolouration [Unknown]
  - Fatigue [Unknown]
  - Flatulence [Unknown]

NARRATIVE: CASE EVENT DATE: 20250423
